FAERS Safety Report 8063991-6 (Version None)
Quarter: 2012Q1

REPORT INFORMATION
  Report Type: 
  Country: None (occurrence: None)
  Receive Date: 20120123
  Receipt Date: 20120111
  Transmission Date: 20120608
  Serious: Yes (Hospitalization)
  Sender: FDA-Public Use
  Company Number: NL-MEDIMMUNE-MEDI-0014497

PATIENT
  Sex: Female
  Weight: 3.9 kg

DRUGS (1)
  1. SYNAGIS [Suspect]
     Indication: PREMATURE BABY
     Route: 030

REACTIONS (5)
  - ADVERSE EVENT [None]
  - BODY TEMPERATURE INCREASED [None]
  - APNOEA [None]
  - PALLOR [None]
  - CYANOSIS [None]
